FAERS Safety Report 5520914-9 (Version None)
Quarter: 2007Q4

REPORT INFORMATION
  Report Type: 
  Country: None (occurrence: None)
  Receive Date: 20071116
  Receipt Date: 20071116
  Transmission Date: 20080405
  Serious: Yes (Life-Threatening)
  Sender: FDA-Public Use
  Company Number: None

PATIENT
  Sex: Female
  Weight: 86.1834 kg

DRUGS (2)
  1. CELEBREX [Suspect]
     Indication: ARTHRALGIA
     Dosage: 200 MG BID PRN AS NEEDED PO
     Route: 048
     Dates: start: 20070413, end: 20070816
  2. CELEBREX [Suspect]
     Indication: BACK PAIN
     Dosage: 200 MG BID PRN AS NEEDED PO
     Route: 048
     Dates: start: 20070413, end: 20070816

REACTIONS (2)
  - ANAPHYLACTIC REACTION [None]
  - NO REACTION ON PREVIOUS EXPOSURE TO DRUG [None]
